FAERS Safety Report 12377353 (Version 1)
Quarter: 2016Q2

REPORT INFORMATION
  Report Type: Report from Study
  Country: US (occurrence: US)
  Receive Date: 20160517
  Receipt Date: 20160517
  Transmission Date: 20160815
  Serious: No
  Sender: FDA-Public Use
  Company Number: US-MALLINCKRODT-T201505401

PATIENT
  Age: 55 Year
  Sex: Female

DRUGS (3)
  1. REPOSITORY CORTICOTROPIN INJECTION [Suspect]
     Active Substance: CORTICOTROPIN
     Dosage: UNK
  2. SIMPONI [Concomitant]
     Active Substance: GOLIMUMAB
     Indication: RHEUMATOID ARTHRITIS
  3. REPOSITORY CORTICOTROPIN INJECTION [Suspect]
     Active Substance: CORTICOTROPIN
     Indication: RHEUMATOID ARTHRITIS
     Dosage: 80 UNITS 2X/WEEK
     Route: 058
     Dates: start: 20151020, end: 20160204

REACTIONS (2)
  - Malaise [Not Recovered/Not Resolved]
  - Drug ineffective [Not Recovered/Not Resolved]

NARRATIVE: CASE EVENT DATE: 20151020
